FAERS Safety Report 6528975-5 (Version None)
Quarter: 2009Q4

REPORT INFORMATION
  Report Type: 
  Country: None (occurrence: None)
  Receive Date: 20091224
  Receipt Date: 20091208
  Transmission Date: 20100525
  Serious: Yes (Life-Threatening)
  Sender: FDA-Public Use
  Company Number: DSA_42222_2009

PATIENT
  Sex: Male

DRUGS (2)
  1. DILTIAZEM [Suspect]
     Indication: ARRHYTHMIA
     Dosage: (200 MG QD ORAL)
     Route: 048
     Dates: start: 20090505, end: 20090507
  2. TENORMIN [Suspect]
     Indication: TACHYCARDIA
     Dosage: (100 MG QD ORAL)
     Route: 048
     Dates: start: 20090507, end: 20090507

REACTIONS (13)
  - ACUTE PULMONARY OEDEMA [None]
  - ATRIAL FIBRILLATION [None]
  - CARDIAC FAILURE ACUTE [None]
  - CARDIOGENIC SHOCK [None]
  - CHOLESTASIS [None]
  - CYTOLYTIC HEPATITIS [None]
  - DIALYSIS [None]
  - ELECTROLYTE IMBALANCE [None]
  - LIPASE INCREASED [None]
  - MALNUTRITION [None]
  - MULTI-ORGAN DISORDER [None]
  - RENAL FAILURE ACUTE [None]
  - VENTRICULAR DYSFUNCTION [None]
